FAERS Safety Report 5994084-7 (Version None)
Quarter: 2008Q4

REPORT INFORMATION
  Report Type: 
  Country: None (occurrence: None)
  Receive Date: 20081212
  Receipt Date: 20080918
  Transmission Date: 20090506
  Serious: No
  Sender: FDA-Public Use
  Company Number: US-ABBOTT-08P-163-0463178-00

PATIENT
  Sex: Female
  Weight: 37.228 kg

DRUGS (8)
  1. HUMIRA [Suspect]
     Indication: CROHN'S DISEASE
     Dosage: LOADING DOSE
     Route: 058
     Dates: start: 20080614, end: 20080614
  2. HUMIRA [Suspect]
     Route: 058
     Dates: start: 20080628, end: 20080628
  3. HUMIRA [Suspect]
     Route: 058
     Dates: start: 20080712
  4. ALLOPURINOL [Concomitant]
     Indication: INSOMNIA
  5. FIORINAL [Concomitant]
     Indication: MIGRAINE
  6. TRAMADOL HCL [Concomitant]
     Indication: ABDOMINAL PAIN
  7. HYOSCYAMINE [Concomitant]
     Indication: ABDOMINAL RIGIDITY
  8. PROMETHAZINE [Concomitant]
     Indication: DRUG USE FOR UNKNOWN INDICATION

REACTIONS (8)
  - ABDOMINAL DISTENSION [None]
  - BRONCHITIS [None]
  - CHILLS [None]
  - HYPERHIDROSIS [None]
  - MIGRAINE [None]
  - MUSCLE SPASMS [None]
  - NAUSEA [None]
  - VOMITING [None]
